FAERS Safety Report 20432515 (Version 1)
Quarter: 2022Q1

REPORT INFORMATION
  Report Type: Spontaneous
  Country: US (occurrence: US)
  Receive Date: 20220204
  Receipt Date: 20220204
  Transmission Date: 20220423
  Serious: No
  Sender: FDA-Public Use
  Company Number: US-PERRIGO-21US007920

PATIENT
  Age: 65 Year
  Sex: Female
  Weight: 54.422 kg

DRUGS (2)
  1. TRETINOIN [Suspect]
     Active Substance: TRETINOIN
     Indication: Acne
     Dosage: SMALL AMOUNT, THREE TIMES A WEEK
     Route: 061
     Dates: start: 2001
  2. TRETINOIN [Suspect]
     Active Substance: TRETINOIN
     Indication: Skin wrinkling

REACTIONS (3)
  - Application site exfoliation [Recovered/Resolved]
  - Off label use [Not Recovered/Not Resolved]
  - Inappropriate schedule of product administration [Not Recovered/Not Resolved]

NARRATIVE: CASE EVENT DATE: 20010101
